FAERS Safety Report 6859341-0 (Version None)
Quarter: 2010Q3

REPORT INFORMATION
  Report Type: 
  Country: None (occurrence: None)
  Receive Date: 20100719
  Receipt Date: 20080220
  Transmission Date: 20110219
  Serious: No
  Sender: FDA-Public Use
  Company Number: US-PFIZER INC-2008021144

PATIENT
  Age: 62 Year
  Sex: Male

DRUGS (6)
  1. CHANTIX [Suspect]
     Indication: SMOKING CESSATION THERAPY
     Dates: start: 20080128, end: 20080204
  2. LEXAPRO [Concomitant]
     Indication: DEPRESSION
  3. BISOPROLOL [Concomitant]
  4. ACETYLSALICYLIC ACID [Concomitant]
  5. MORPHINE SULFATE [Concomitant]
  6. ROXICODONE [Concomitant]

REACTIONS (1)
  - ANXIETY [None]
